FAERS Safety Report 5928329-6 (Version None)
Quarter: 2008Q4

REPORT INFORMATION
  Report Type: 
  Country: None (occurrence: None)
  Receive Date: 20081023
  Receipt Date: 20081016
  Transmission Date: 20090506
  Serious: Yes (Life-Threatening, Hospitalization)
  Sender: FDA-Public Use
  Company Number: US-WYE-H06099108

PATIENT
  Sex: Male
  Weight: 90 kg

DRUGS (8)
  1. TORISEL [Suspect]
     Indication: RENAL CELL CARCINOMA
     Route: 042
     Dates: start: 20080319, end: 20080501
  2. FLOMAX [Concomitant]
  3. GINSENG [Concomitant]
  4. IRON [Concomitant]
     Dosage: 3 TIMES A DAY (DOSE NOT SPECIFIED)
  5. KELP [Concomitant]
  6. PROZAC [Concomitant]
     Indication: DEPRESSION
  7. ZOFRAN [Concomitant]
     Indication: NAUSEA
     Dosage: 8 MG PRN
  8. ZOFRAN [Concomitant]
     Indication: VOMITING

REACTIONS (2)
  - NO THERAPEUTIC RESPONSE [None]
  - RENAL FAILURE ACUTE [None]
